FAERS Safety Report 10225395 (Version 7)
Quarter: 2020Q3

REPORT INFORMATION
  Report Type: Report from Study
  Country: US (occurrence: US)
  Receive Date: 20140609
  Receipt Date: 20180207
  Transmission Date: 20201104
  Serious: Yes (Death, Hospitalization)
  Sender: FDA-Public Use
  Company Number: US-JNJFOC-20140605165

PATIENT
  Age: 74 Year
  Sex: Female

DRUGS (5)
  1. RITUXIMAB. [Suspect]
     Active Substance: RITUXIMAB
     Indication: CHRONIC LYMPHOCYTIC LEUKAEMIA
     Dosage: DAYS 1, 8, 15, 22. CYCLE 3?6 DAY 1
     Route: 042
     Dates: start: 20140327, end: 20140516
  2. IBRUTINIB [Suspect]
     Active Substance: IBRUTINIB
     Route: 048
  3. IBRUTINIB [Suspect]
     Active Substance: IBRUTINIB
     Indication: CHRONIC LYMPHOCYTIC LEUKAEMIA
     Dosage: START PERIOD 83 DAYS LAST PERIOD 5 DAYS
     Route: 048
     Dates: start: 20140227, end: 20140516
  4. ZOVIRAX [Concomitant]
     Active Substance: ACYCLOVIR
  5. PREVACID [Concomitant]
     Active Substance: LANSOPRAZOLE

REACTIONS (5)
  - Progressive multifocal leukoencephalopathy [Fatal]
  - Hemiparesis [Not Recovered/Not Resolved]
  - Peripheral sensory neuropathy [Not Recovered/Not Resolved]
  - Fatigue [Not Recovered/Not Resolved]
  - Gait disturbance [Not Recovered/Not Resolved]

NARRATIVE: CASE EVENT DATE: 20140505
